FAERS Safety Report 5046520-0 (Version None)
Quarter: 2006Q3

REPORT INFORMATION
  Report Type: 
  Country: None (occurrence: None)
  Receive Date: 20060706
  Receipt Date: 20060706
  Transmission Date: 20061208
  Serious: No
  Sender: FDA-Public Use
  Company Number: None

PATIENT
  Age: 59 Year
  Sex: Male

DRUGS (10)
  1. ENALAPRIL MALEATE [Suspect]
     Indication: HYPERTENSION
     Dosage: 5 MG BID PO
     Route: 048
     Dates: start: 20060404, end: 20060405
  2. AMITIPTYLINE HCL [Concomitant]
  3. CLINDAMYCIN [Concomitant]
  4. FLUNISOLIDE [Concomitant]
  5. GABAPENTIN [Concomitant]
  6. GUAIFENESIN DM [Concomitant]
  7. HYDROCHLOROTHIAZIDE [Concomitant]
  8. LORATADINE [Concomitant]
  9. METOPROLOL TARTRATE [Concomitant]
  10. MOXIFLOXACIN HCL [Concomitant]

REACTIONS (1)
  - SWELLING FACE [None]
